FAERS Safety Report 5501450-2 (Version None)
Quarter: 2007Q4

REPORT INFORMATION
  Report Type: 
  Country: None (occurrence: None)
  Receive Date: 20071030
  Receipt Date: 20071022
  Transmission Date: 20080405
  Serious: Yes (Other)
  Sender: FDA-Public Use
  Company Number: PHBS2007GT17594

PATIENT
  Age: 75 Year
  Sex: Male

DRUGS (3)
  1. DIOVAN [Suspect]
     Indication: HYPERTENSION
     Dosage: 320 MG/D
     Route: 048
     Dates: start: 20070207
  2. AMOXICILLIN TRIHYDRATE [Concomitant]
     Dosage: 0.5 DF, QD
     Route: 048
  3. BLOKIUM-DIU [Concomitant]
     Dosage: 1 TAB/D
     Route: 048

REACTIONS (1)
  - BRONCHOSPASM [None]
